FAERS Safety Report 4591944-9 (Version None)
Quarter: 2005Q1

REPORT INFORMATION
  Report Type: 
  Country: None (occurrence: None)
  Receive Date: 20050222
  Receipt Date: 20050214
  Transmission Date: 20050727
  Serious: Yes (Hospitalization)
  Sender: FDA-Public Use
  Company Number: FABR-10936

PATIENT
  Age: 46 Year
  Sex: Female
  Weight: 59 kg

DRUGS (3)
  1. FABRAZYME [Suspect]
     Indication: FABRY'S DISEASE
     Dosage: 59 MG Q2WKS IV
     Route: 042
     Dates: start: 20031030
  2. BENADRYL [Concomitant]
  3. TYLENOL (CAPLET) [Concomitant]

REACTIONS (8)
  - ARTHRALGIA [None]
  - BLOOD PRESSURE SYSTOLIC INCREASED [None]
  - FABRY'S DISEASE [None]
  - FEELING HOT [None]
  - HEART RATE INCREASED [None]
  - PAIN [None]
  - PARAESTHESIA [None]
  - RESPIRATORY RATE INCREASED [None]
